FAERS Safety Report 20703476 (Version 1)
Quarter: 2022Q2

REPORT INFORMATION
  Report Type: Spontaneous
  Country: TR (occurrence: TR)
  Receive Date: 20220413
  Receipt Date: 20220413
  Transmission Date: 20220721
  Serious: Yes (Death, Life-Threatening, Other)
  Sender: FDA-Public Use
  Company Number: TR-AMGEN-TURSP2022060708

PATIENT

DRUGS (11)
  1. FILGRASTIM [Suspect]
     Active Substance: FILGRASTIM
     Indication: Autologous bone marrow transplantation therapy
     Dosage: 5 MICROGRAM/KILOGRAM, QD (5LIG/KG/DAY)
     Route: 065
  2. ETOPOSIDE [Concomitant]
     Active Substance: ETOPOSIDE
     Indication: Autologous bone marrow transplantation therapy
     Dosage: 250 MILLILITRE PER SQUARE METRE, QD (DAY -6, -5, -4, AND -3)  AS DAILY 2-H INFUSION
     Route: 042
  3. THIOTEPA [Concomitant]
     Active Substance: THIOTEPA
     Indication: Autologous bone marrow transplantation therapy
     Dosage: 166 MILLILITRE PER SQUARE METRE, QD ((DAY -5, -4, AND -3) AS DAILY 2-H INFUSION),
     Route: 042
  4. CARBOPLATIN [Concomitant]
     Active Substance: CARBOPLATIN
     Indication: Autologous bone marrow transplantation therapy
     Dosage: 266 MILLIGRAM PER SQUARE METRE, QD (DAY -5, -4, AND -3) AS DAILY 4-H INFUSION
     Route: 042
  5. METOCLOPRAMIDE [Concomitant]
     Active Substance: METOCLOPRAMIDE
     Indication: Autologous bone marrow transplantation therapy
     Dosage: 20-30 MG/DAY (DAY -7 TO DAY +3)
     Route: 042
  6. DEXAMETHASONE [Concomitant]
     Active Substance: DEXAMETHASONE
     Indication: Autologous bone marrow transplantation therapy
     Dosage: 8 MILLIGRAM, QD, (DAY -7 TO DAY +3)
  7. GRANISETRON [Concomitant]
     Active Substance: GRANISETRON
     Indication: Prophylaxis of nausea and vomiting
     Dosage: 3 MILLIGRAM, QD (DAY -4 TO DAY +3)
     Route: 042
  8. FLUCONAZOLE [Concomitant]
     Active Substance: FLUCONAZOLE
     Indication: Prophylaxis
     Dosage: 200 MILLIGRAM, QD (DAY -8 TO DAY +30)
  9. VALACYCLOVIR HYDROCHLORIDE [Concomitant]
     Active Substance: VALACYCLOVIR HYDROCHLORIDE
     Indication: Prophylaxis
     Dosage: 1000 MILLIGRAM, QD (DAY -8 TO DAY +30)
  10. METRONIDAZOLE [Concomitant]
     Active Substance: METRONIDAZOLE
     Indication: Prophylaxis
     Dosage: 1500 MILLIGRAM, QD (DAY -8 TO DAY +30)
  11. SULFAMETHOXAZOLE\TRIMETHOPRIM [Concomitant]
     Active Substance: SULFAMETHOXAZOLE\TRIMETHOPRIM
     Indication: Prophylaxis
     Dosage: 1600 MILLIGRAM, QD (TWO DAYS A WEEK, DAY -7 TO DAY +30)

REACTIONS (10)
  - Germ cell cancer metastatic [Fatal]
  - Alanine aminotransferase increased [Unknown]
  - Aspartate aminotransferase increased [Unknown]
  - Febrile neutropenia [Unknown]
  - Stomatitis [Unknown]
  - Neurotoxicity [Unknown]
  - Nausea [Unknown]
  - Diarrhoea [Unknown]
  - Blood bilirubin increased [Unknown]
  - Blood creatinine increased [Unknown]
